APPROVED DRUG PRODUCT: TRAMADOL HYDROCHLORIDE AND ACETAMINOPHEN
Active Ingredient: ACETAMINOPHEN; TRAMADOL HYDROCHLORIDE
Strength: 325MG;37.5MG
Dosage Form/Route: TABLET;ORAL
Application: A090485 | Product #001 | TE Code: AB
Applicant: AMNEAL PHARMACEUTICALS
Approved: Dec 9, 2009 | RLD: No | RS: Yes | Type: RX